FAERS Safety Report 5292665-X (Version None)
Quarter: 2007Q2

REPORT INFORMATION
  Report Type: 
  Country: None (occurrence: None)
  Receive Date: 20070404
  Receipt Date: 20070323
  Transmission Date: 20071010
  Serious: Yes (Hospitalization)
  Sender: FDA-Public Use
  Company Number: 2006S1010239

PATIENT
  Age: 15 Year
  Sex: Female

DRUGS (5)
  1. METHOTREXATE [Suspect]
     Indication: JUVENILE ARTHRITIS
     Dosage: 25 MG;WEEKLY;ORAL
     Route: 048
     Dates: start: 20060208
  2. PREDNISONE 50MG TAB [Suspect]
     Indication: JUVENILE ARTHRITIS
     Dosage: 50 MG; EVERY OTHER DAY; ORAL
     Route: 048
     Dates: start: 20060630
  3. FOLIC ACID [Concomitant]
  4. LANSOPRAZOLE [Concomitant]
  5. NAPROSYN [Suspect]
     Indication: JUVENILE ARTHRITIS
     Dosage: 500 MG;TWICE A DAY; ORAL
     Route: 048
     Dates: start: 20060131, end: 20060825

REACTIONS (6)
  - ANAEMIA [None]
  - DIZZINESS [None]
  - GASTRIC ULCER [None]
  - GASTRITIS [None]
  - OCCULT BLOOD POSITIVE [None]
  - TACHYCARDIA [None]
